FAERS Safety Report 8880427 (Version 1)
Quarter: 2012Q4

REPORT INFORMATION
  Report Type: 
  Country: IT (occurrence: IT)
  Receive Date: 20121101
  Receipt Date: 20121101
  Transmission Date: 20130627
  Serious: Yes (Hospitalization)
  Sender: FDA-Public Use
  Company Number: PHHY2012IT096890

PATIENT
  Age: 88 Year
  Sex: Female

DRUGS (3)
  1. COMBISARTAN [Suspect]
     Dosage: 1 DF, (160 mg vals and 12.5 mg hctz)
     Route: 048
     Dates: start: 20110601, end: 20121013
  2. MODURETIC [Interacting]
     Dosage: 5 mg/day
     Route: 048
     Dates: start: 20121001, end: 20121013
  3. TAPAZOLE [Concomitant]

REACTIONS (4)
  - Hyperkalaemia [Recovering/Resolving]
  - Vertigo [Recovering/Resolving]
  - Dysarthria [Recovering/Resolving]
  - Drug interaction [Recovering/Resolving]
